FAERS Safety Report 14893615 (Version 2)
Quarter: 2018Q2

REPORT INFORMATION
  Report Type: Spontaneous
  Country: JP (occurrence: JP)
  Receive Date: 20180514
  Receipt Date: 20180608
  Transmission Date: 20180711
  Serious: Yes (Death)
  Sender: FDA-Public Use
  Company Number: JP-EISAI MEDICAL RESEARCH-EC-2018-039776

PATIENT
  Age: 64 Year
  Sex: Male
  Weight: 87 kg

DRUGS (3)
  1. LENVIMA [Suspect]
     Active Substance: LENVATINIB
     Indication: HEPATOCELLULAR CARCINOMA
     Route: 048
     Dates: start: 20171114, end: 20180427
  2. PREDNISONE. [Suspect]
     Active Substance: PREDNISONE
     Dosage: UNKNOWN INCREASED DOSE
     Route: 048
     Dates: start: 2018, end: 201804
  3. PREDNISONE. [Suspect]
     Active Substance: PREDNISONE
     Indication: ASTHMA
     Route: 048
     Dates: end: 2018

REACTIONS (1)
  - Portal vein thrombosis [Fatal]

NARRATIVE: CASE EVENT DATE: 20180428
